FAERS Safety Report 12353664 (Version 2)
Quarter: 2016Q4

REPORT INFORMATION
  Report Type: Spontaneous
  Country: JP (occurrence: JP)
  Receive Date: 20160511
  Receipt Date: 20161216
  Transmission Date: 20170207
  Serious: Yes (Other)
  Sender: FDA-Public Use
  Company Number: JP-AMGEN-JPNSP2016059784

PATIENT
  Age: 54 Year
  Sex: Male
  Weight: 68 kg

DRUGS (18)
  1. ISOTONIC SODIUM CHLORIDE SOLUTION [Concomitant]
     Active Substance: SODIUM CHLORIDE
     Dosage: 250 ML, QD
     Route: 042
     Dates: start: 20150710, end: 20150710
  2. DEXART [Concomitant]
     Active Substance: DEXAMETHASONE SODIUM PHOSPHATE
     Dosage: 6.6 MG, QD
     Route: 065
     Dates: start: 20150712, end: 20150713
  3. G-LASTA [Suspect]
     Active Substance: PEGFILGRASTIM
     Indication: COLONY STIMULATING FACTOR PROPHYLAXIS
     Dosage: 3.6 MG, QD
     Route: 058
     Dates: start: 20150715, end: 20150715
  4. ISOTONIC SODIUM CHLORIDE SOLUTION [Concomitant]
     Active Substance: SODIUM CHLORIDE
     Dosage: 100 ML, QD
     Route: 042
     Dates: start: 20150711, end: 20150713
  5. ASPARA POTASSIUM [Concomitant]
     Active Substance: POTASSIUM ASPARTATE
     Dosage: 10 MEQ, BID
     Route: 041
     Dates: start: 20150709, end: 20150709
  6. ALOXI [Concomitant]
     Active Substance: PALONOSETRON HYDROCHLORIDE
     Dosage: 0.75 MG, QD
     Route: 042
     Dates: start: 20150710, end: 20150710
  7. SULBACILLIN [Concomitant]
     Active Substance: AMPICILLIN SODIUM\SULBACTAM SODIUM
     Indication: PROPHYLAXIS
     Dosage: 0.75 MG, BID
     Route: 041
     Dates: start: 20150715, end: 20150715
  8. DEXTROSE. [Concomitant]
     Active Substance: DEXTROSE
     Dosage: 500 ML, BID
     Route: 042
     Dates: start: 20150709, end: 20150709
  9. CISPLATIN. [Concomitant]
     Active Substance: CISPLATIN
     Indication: LIP AND/OR ORAL CAVITY CANCER
     Dosage: 53 MG, QD
     Route: 041
     Dates: start: 20150710, end: 20150713
  10. 5-FU                               /00098801/ [Concomitant]
     Active Substance: FLUOROURACIL
     Indication: LIP AND/OR ORAL CAVITY CANCER
     Dosage: 1329 MG, QD
     Route: 041
     Dates: start: 20150710, end: 20150713
  11. DEXART [Concomitant]
     Active Substance: DEXAMETHASONE SODIUM PHOSPHATE
     Dosage: 8.25 MG, QD
     Route: 065
     Dates: start: 20150710, end: 20150710
  12. ISOTONIC SODIUM CHLORIDE SOLUTION [Concomitant]
     Active Substance: SODIUM CHLORIDE
     Dosage: 500 ML, BID
     Route: 042
     Dates: start: 20150711, end: 20150714
  13. DOCETAXEL. [Concomitant]
     Active Substance: DOCETAXEL
     Indication: LIP AND/OR ORAL CAVITY CANCER
     Dosage: 106 MG, QD
     Route: 041
     Dates: start: 20150710, end: 20150710
  14. ISOTONIC SODIUM CHLORIDE SOLUTION [Concomitant]
     Active Substance: SODIUM CHLORIDE
     Dosage: 500 ML, BID
     Route: 042
     Dates: start: 20150709, end: 20150709
  15. ISOTONIC SODIUM CHLORIDE SOLUTION [Concomitant]
     Active Substance: SODIUM CHLORIDE
     Dosage: 500 ML, TID
     Route: 042
     Dates: start: 20160710, end: 20160710
  16. DEXART [Concomitant]
     Active Substance: DEXAMETHASONE SODIUM PHOSPHATE
     Dosage: 3.3 MG, QD
     Route: 065
     Dates: start: 20150711, end: 20150711
  17. MANNITOL. [Concomitant]
     Active Substance: MANNITOL
     Dosage: 300 ML, QD
     Route: 041
     Dates: start: 20150709, end: 20150709
  18. PROEMEND [Concomitant]
     Active Substance: FOSAPREPITANT
     Dosage: 150 MG, QD
     Route: 041
     Dates: start: 20150710, end: 20150710

REACTIONS (1)
  - Febrile neutropenia [Recovered/Resolved]
